FAERS Safety Report 16349936 (Version 1)
Quarter: 2019Q2

REPORT INFORMATION
  Report Type: Spontaneous
  Country: US (occurrence: US)
  Receive Date: 20190417
  Receipt Date: 20190417
  Transmission Date: 20190711
  Serious: Yes (Hospitalization)
  Sender: FDA-Public Use
  Company Number: None

PATIENT
  Age: 72 Year
  Sex: Male
  Weight: 122.02 kg

DRUGS (1)
  1. GADOBUTROL. [Suspect]
     Active Substance: GADOBUTROL
     Indication: NUCLEAR MAGNETIC RESONANCE IMAGING
     Route: 042
     Dates: start: 20190208, end: 20190208

REACTIONS (6)
  - Oxygen saturation abnormal [None]
  - Cerebrovascular accident [None]
  - Respiratory failure [None]
  - Septic shock [None]
  - Tachypnoea [None]
  - Hypotension [None]

NARRATIVE: CASE EVENT DATE: 20190208
